FAERS Safety Report 26104593 (Version 1)
Quarter: 2025Q4

REPORT INFORMATION
  Report Type: Report from Study
  Country: US (occurrence: US)
  Receive Date: 20251130
  Receipt Date: 20251130
  Transmission Date: 20260117
  Serious: Yes (Other)
  Sender: ABBVIE
  Company Number: US-ABBVIE-6565555

PATIENT
  Age: 41 Year
  Sex: Male

DRUGS (1)
  1. UBRELVY [Suspect]
     Active Substance: UBROGEPANT
     Indication: Product used for unknown indication
     Route: 048
     Dates: start: 20251105

REACTIONS (3)
  - Neoplasm malignant [Unknown]
  - Adverse drug reaction [Unknown]
  - Migraine [Unknown]

NARRATIVE: CASE EVENT DATE: 20251101
